FAERS Safety Report 4367135-3 (Version None)
Quarter: 2004Q2

REPORT INFORMATION
  Report Type: 
  Country: None (occurrence: None)
  Receive Date: 20040528
  Receipt Date: 20040512
  Transmission Date: 20050107
  Serious: Yes (Other)
  Sender: FDA-Public Use
  Company Number: NL-GLAXOSMITHKLINE-B0332795A

PATIENT
  Age: 21 Year
  Sex: Male

DRUGS (1)
  1. FLUTICASONE PROPIONATE [Suspect]
     Dates: start: 20040421

REACTIONS (4)
  - DIZZINESS [None]
  - HYPOTENSION [None]
  - STRESS SYMPTOMS [None]
  - SYNCOPE [None]
